FAERS Safety Report 20804991 (Version 3)
Quarter: 2022Q3

REPORT INFORMATION
  Report Type: Spontaneous
  Country: US (occurrence: US)
  Receive Date: 20220509
  Receipt Date: 20220707
  Transmission Date: 20221026
  Serious: No
  Sender: FDA-Public Use
  Company Number: US-PFIZER INC-202101781258

PATIENT
  Age: 86 Year
  Sex: Female
  Weight: 48.98 kg

DRUGS (16)
  1. XELJANZ XR [Suspect]
     Active Substance: TOFACITINIB CITRATE
     Indication: Rheumatoid arthritis
     Dosage: 11 MG, 1X/DAY
     Dates: start: 202104
  2. XELJANZ XR [Suspect]
     Active Substance: TOFACITINIB CITRATE
     Dosage: 11 MG (DOSE RESTARTED)
  3. ACETAMINOPHEN [Concomitant]
     Active Substance: ACETAMINOPHEN
     Dosage: 500 MG
  4. AMLODIPINE [Concomitant]
     Active Substance: AMLODIPINE BESYLATE
     Dosage: 5 MG
  5. CALCIUM [Concomitant]
     Active Substance: CALCIUM
     Dosage: 600 MG
  6. DENOSUMAB [Concomitant]
     Active Substance: DENOSUMAB
     Dosage: 60 MG
  7. FOLIC ACID [Concomitant]
     Active Substance: FOLIC ACID
     Dosage: 400 UG
  8. IMODIUM [Concomitant]
     Active Substance: LOPERAMIDE HYDROCHLORIDE
     Dosage: UNK
  9. ISOSORBIDE MONONITRATE [Concomitant]
     Active Substance: ISOSORBIDE MONONITRATE
     Dosage: UNK
  10. KETOCONAZOLE [Concomitant]
     Active Substance: KETOCONAZOLE
     Dosage: UNK
  11. LEVOTHYROXINE [Concomitant]
     Active Substance: LEVOTHYROXINE
     Dosage: 88 UG
  12. LOSARTAN [Concomitant]
     Active Substance: LOSARTAN
     Dosage: 100 MG
  13. METHOTREXATE BRISTOL [Concomitant]
     Dosage: 2.5 MG
  14. TOPROL XL [Concomitant]
     Active Substance: METOPROLOL SUCCINATE
     Dosage: 100 MG
  15. PREDNISONE [Concomitant]
     Active Substance: PREDNISONE
     Dosage: 2.5 MG
  16. TRAMADOL [Concomitant]
     Active Substance: TRAMADOL
     Dosage: 50 MG

REACTIONS (1)
  - Feeling abnormal [Unknown]
